FAERS Safety Report 4718954-2 (Version None)
Quarter: 2005Q3

REPORT INFORMATION
  Report Type: 
  Country: None (occurrence: None)
  Receive Date: 20050719
  Receipt Date: 20050708
  Transmission Date: 20060218
  Serious: Yes (Hospitalization)
  Sender: FDA-Public Use
  Company Number: 2005097859

PATIENT
  Age: 75 Year
  Sex: Male

DRUGS (9)
  1. ATORVASTATIN CALCIUM [Suspect]
     Indication: ILL-DEFINED DISORDER
     Dosage: 10 MG (DAILY), ORAL
     Route: 048
  2. ALDALIX                     (SPIRONOLACTONE, FUROSEMIDE) [Suspect]
     Indication: ILL-DEFINED DISORDER
     Dosage: 50MG/20MG (1 IN 1 D),ORAL
     Route: 048
     Dates: end: 20050615
  3. MIANSERIN               (MIANSERIN) [Suspect]
     Indication: ILL-DEFINED DISORDER
     Dosage: 1 ^LT^ (210 MG, DAILY), ORAL
     Route: 048
  4. BUMETANIDE [Suspect]
     Indication: ILL-DEFINED DISORDER
     Dosage: 5 MG (5 MG, 1 IN 1 D), ORAL
     Route: 048
  5. RAMIPRIL [Suspect]
     Indication: ILL-DEFINED DISORDER
     Dosage: 2.5 MG (2.5 MG, 1 IN 1 D), ORAL
     Route: 048
  6. CARVEDILOL [Suspect]
     Indication: ILL-DEFINED DISORDER
     Dosage: 25 MG, DAILY, ORAL
     Route: 048
  7. BUFLOMEDIL (BUFLOMEDIL) [Concomitant]
  8. ACENOCOUMAROL [Concomitant]
  9. NOCTRAN 10 [Concomitant]

REACTIONS (2)
  - HYPOTENSION [None]
  - VERTIGO [None]
